FAERS Safety Report 8246087-X (Version None)
Quarter: 2012Q1

REPORT INFORMATION
  Report Type: 
  Country: None (occurrence: None)
  Receive Date: 20120330
  Receipt Date: 20120327
  Transmission Date: 20120608
  Serious: Yes (Death, Other)
  Sender: FDA-Public Use
  Company Number: PHHY2012JP026729

PATIENT
  Age: 69 Year
  Sex: Female

DRUGS (5)
  1. HYDROXYUREA [Concomitant]
     Indication: HYPEREOSINOPHILIC SYNDROME
     Dates: start: 20101201
  2. MERCAPTOPURINE [Concomitant]
     Indication: HYPEREOSINOPHILIC SYNDROME
  3. IMATINIB MESYLATE [Suspect]
     Indication: HYPEREOSINOPHILIC SYNDROME
  4. ETOPOSIDE [Concomitant]
     Indication: HYPEREOSINOPHILIC SYNDROME
  5. CYTARABINE [Concomitant]
     Indication: HYPEREOSINOPHILIC SYNDROME

REACTIONS (4)
  - CHRONIC EOSINOPHILIC LEUKAEMIA [None]
  - DRUG INEFFECTIVE [None]
  - DECREASED APPETITE [None]
  - CARDIO-RESPIRATORY ARREST [None]
